FAERS Safety Report 12448087 (Version 1)
Quarter: 2016Q2

REPORT INFORMATION
  Report Type: Spontaneous
  Country: US (occurrence: US)
  Receive Date: 20160608
  Receipt Date: 20160608
  Transmission Date: 20160815
  Serious: Yes (Other)
  Sender: FDA-Public Use
  Company Number: US-B.I. PHARMACEUTICALS,INC./RIDGEFIELD-2016-BI-35490BP

PATIENT
  Age: 81 Year
  Sex: Female

DRUGS (2)
  1. SPIRIVA [Suspect]
     Active Substance: TIOTROPIUM BROMIDE MONOHYDRATE
     Indication: CHRONIC OBSTRUCTIVE PULMONARY DISEASE
     Dosage: 18 MCG
     Route: 055
     Dates: start: 2011
  2. SPIRIVA [Suspect]
     Active Substance: TIOTROPIUM BROMIDE MONOHYDRATE
     Dosage: 18 MCG
     Route: 048
     Dates: start: 20160601, end: 20160601

REACTIONS (5)
  - Stress [Unknown]
  - Mycobacterium avium complex infection [Unknown]
  - Herpes zoster [Recovered/Resolved with Sequelae]
  - Incorrect route of drug administration [Recovered/Resolved]
  - Lung carcinoma cell type unspecified recurrent [Unknown]

NARRATIVE: CASE EVENT DATE: 201601
